FAERS Safety Report 7499393-0 (Version None)
Quarter: 2011Q2

REPORT INFORMATION
  Report Type: 
  Country: None (occurrence: None)
  Receive Date: 20110524
  Receipt Date: 20110513
  Transmission Date: 20111010
  Serious: Yes (Hospitalization)
  Sender: FDA-Public Use
  Company Number: KR-JNJFOC-20100510586

PATIENT
  Sex: Male
  Weight: 75.5 kg

DRUGS (2)
  1. PALIPERIDONE PALMITATE [Suspect]
     Route: 030
     Dates: start: 20100512, end: 20100512
  2. PALIPERIDONE PALMITATE [Suspect]
     Indication: SCHIZOPHRENIA
     Route: 030
     Dates: start: 20100519, end: 20100519

REACTIONS (1)
  - DYSTONIA [None]
